FAERS Safety Report 4970406-0 (Version None)
Quarter: 2006Q2

REPORT INFORMATION
  Report Type: 
  Country: None (occurrence: None)
  Receive Date: 20060412
  Receipt Date: 20060328
  Transmission Date: 20061013
  Serious: Yes (Other)
  Sender: FDA-Public Use
  Company Number: JP-JPN-A200601074

PATIENT
  Sex: Female

DRUGS (2)
  1. ZEFIX [Suspect]
     Indication: VIRAL HEPATITIS CARRIER
     Dosage: 50MG PER DAY
     Route: 048
  2. ISCOTIN [Concomitant]
     Route: 065

REACTIONS (1)
  - PANCYTOPENIA [None]
